FAERS Safety Report 6045939-9 (Version None)
Quarter: 2009Q1

REPORT INFORMATION
  Report Type: 
  Country: None (occurrence: None)
  Receive Date: 20090121
  Receipt Date: 20090119
  Transmission Date: 20090719
  Serious: Yes (Congenital Anomaly, Other)
  Sender: FDA-Public Use
  Company Number: FR-ABBOTT-08P-056-0492804-00

PATIENT

DRUGS (1)
  1. HUMIRA [Suspect]
     Indication: PATERNAL DRUGS AFFECTING FOETUS

REACTIONS (7)
  - ABORTION INDUCED [None]
  - CEREBRAL VENTRICLE DILATATION [None]
  - CONGENITAL CENTRAL NERVOUS SYSTEM ANOMALY [None]
  - DRUG EXPOSURE DURING PREGNANCY [None]
  - FOETAL CHROMOSOME ABNORMALITY [None]
  - FOETAL GROWTH RETARDATION [None]
  - PYELOCALIECTASIS [None]
